FAERS Safety Report 8242195-8 (Version None)
Quarter: 2012Q1

REPORT INFORMATION
  Report Type: 
  Country: None (occurrence: None)
  Receive Date: 20120329
  Receipt Date: 20120323
  Transmission Date: 20120608
  Serious: Yes (Hospitalization)
  Sender: FDA-Public Use
  Company Number: FR-AMGEN-FRASP2012019208

PATIENT
  Age: 60 Year
  Sex: Male
  Weight: 65 kg

DRUGS (5)
  1. PEGFILGRASTIM [Suspect]
     Indication: MANTLE CELL LYMPHOMA
     Dosage: 6 MG, UNK
     Route: 058
     Dates: start: 20120206, end: 20120206
  2. CYTARABINE [Suspect]
     Indication: MANTLE CELL LYMPHOMA
     Dosage: 3500 MG, UNK
     Dates: start: 20120201, end: 20120201
  3. DEXAMETHASONE [Suspect]
     Indication: MANTLE CELL LYMPHOMA
     Dosage: 40 MG, UNK
     Dates: start: 20120131, end: 20120131
  4. RITUXIMAB [Suspect]
     Indication: MANTLE CELL LYMPHOMA
     Dosage: 660 MG, UNK
     Route: 042
     Dates: start: 20120203, end: 20120203
  5. CISPLATIN [Suspect]
     Indication: MANTLE CELL LYMPHOMA
     Dosage: 175 MG, UNK
     Route: 042
     Dates: start: 20120131, end: 20120131

REACTIONS (3)
  - PURPURA [None]
  - EXTREMITY NECROSIS [None]
  - BLISTER [None]
